FAERS Safety Report 7868956-2 (Version None)
Quarter: 2011Q4

REPORT INFORMATION
  Report Type: 
  Country: None (occurrence: None)
  Receive Date: 20111026
  Receipt Date: 20111026
  Transmission Date: 20120403
  Serious: Yes (Life-Threatening, Hospitalization)
  Sender: FDA-Public Use
  Company Number: None

PATIENT
  Age: 61 Year
  Sex: Male
  Weight: 91.8 kg

DRUGS (1)
  1. TRAMADOL HCL [Suspect]
     Indication: PAIN
     Dosage: 50 MG, TID, PO
     Route: 048
     Dates: start: 20110912, end: 20110919

REACTIONS (7)
  - LOSS OF CONSCIOUSNESS [None]
  - HYPOKALAEMIA [None]
  - ALCOHOL USE [None]
  - NYSTAGMUS [None]
  - RESPIRATORY ARREST [None]
  - PARTIAL SEIZURES [None]
  - GRAND MAL CONVULSION [None]
